FAERS Safety Report 16418265 (Version 1)
Quarter: 2019Q2

REPORT INFORMATION
  Report Type: Spontaneous
  Country: CA (occurrence: CA)
  Receive Date: 20190612
  Receipt Date: 20190612
  Transmission Date: 20190711
  Serious: Yes (Life-Threatening, Other)
  Sender: FDA-Public Use
  Company Number: CA-AUROBINDO-AUR-APL-2019-031666

PATIENT

DRUGS (3)
  1. AMLODIPINE [Suspect]
     Active Substance: AMLODIPINE BESYLATE
     Indication: SYSTEMIC SCLERODERMA
     Dosage: UNK
     Route: 065
  2. CAPTOPRIL. [Suspect]
     Active Substance: CAPTOPRIL
     Indication: SYSTEMIC SCLERODERMA
     Dosage: UNK
     Route: 065
  3. LOSARTAN TABLETS [Suspect]
     Active Substance: LOSARTAN
     Indication: SYSTEMIC SCLERODERMA
     Dosage: UNK
     Route: 065

REACTIONS (6)
  - Renal transplant [Unknown]
  - Drug ineffective for unapproved indication [Unknown]
  - Haemodialysis [Unknown]
  - End stage renal disease [Unknown]
  - Off label use [Unknown]
  - Scleroderma renal crisis [Unknown]
